FAERS Safety Report 12203911 (Version 1)
Quarter: 2016Q1

REPORT INFORMATION
  Report Type: Spontaneous
  Country: US (occurrence: None)
  Receive Date: 20160322
  Receipt Date: 20160322
  Transmission Date: 20160526
  Serious: No
  Sender: FDA-Public Use
  Company Number: None

PATIENT
  Age: 71 Year
  Sex: Male
  Weight: 122.47 kg

DRUGS (6)
  1. METOPOLOL [Concomitant]
  2. LOSARTAN. [Concomitant]
     Active Substance: LOSARTAN
  3. ICLUSIG [Suspect]
     Active Substance: PONATINIB
     Indication: CHRONIC MYELOID LEUKAEMIA
     Dosage: 2 PILLS AT BEDTIME TAKEN BY MOUTH
     Route: 048
     Dates: start: 20160314, end: 20160317
  4. 81ASPAIN [Concomitant]
  5. ATORVASTATIN [Concomitant]
     Active Substance: ATORVASTATIN
  6. CLOPIDOGREL [Concomitant]
     Active Substance: CLOPIDOGREL BISULFATE

REACTIONS (9)
  - Pyrexia [None]
  - Chills [None]
  - Back pain [None]
  - Heart rate increased [None]
  - Malaise [None]
  - Dyspnoea [None]
  - Chest pain [None]
  - Abdominal pain upper [None]
  - Flushing [None]

NARRATIVE: CASE EVENT DATE: 20160321
